FAERS Safety Report 8526486 (Version 2)
Quarter: 2012Q4

REPORT INFORMATION
  Report Type: Spontaneous
  Country: US (occurrence: None)
  Receive Date: 20120416
  Receipt Date: 20120817
  Transmission Date: 20130627
  Serious: Yes (Hospitalization)
  Sender: FDA-Public Use
  Company Number: DSA_55079_2012

PATIENT
  Age: 79 Year
  Sex: Male

DRUGS (7)
  1. XENAZINE [Suspect]
     Indication: HUNTINGTON^S DISEASE
     Dosage: one half tablet
     Route: 048
  2. XENAZINE [Suspect]
     Indication: HUNTINGTON^S DISEASE
     Dosage: one half tablet
     Route: 048
     Dates: start: 2012, end: 2012
  3. XENAZINE [Suspect]
     Indication: HUNTINGTON^S DISEASE
     Route: 048
     Dates: start: 2012, end: 2012
  4. XENAZINE [Suspect]
     Indication: HUNTINGTON^S DISEASE
     Dosage: dose increased
     Route: 048
     Dates: start: 20120208, end: 2012
  5. XENAZINE [Suspect]
     Indication: HUNTINGTON^S DISEASE
     Dosage: (DF)
     Route: 048
     Dates: start: 20120117, end: 20120207
  6. COUMADIN [Concomitant]
  7. LOVENOX [Concomitant]

REACTIONS (7)
  - Somnolence [None]
  - Anxiety [None]
  - Restlessness [None]
  - Confusional state [None]
  - Thrombosis [None]
  - Tremor [None]
  - Condition aggravated [None]
